FAERS Safety Report 4817249-6 (Version None)
Quarter: 2005Q4

REPORT INFORMATION
  Report Type: 
  Country: None (occurrence: None)
  Receive Date: 20051018
  Receipt Date: 20050818
  Transmission Date: 20060501
  Serious: Yes (Other)
  Sender: FDA-Public Use
  Company Number: PHEH2005US01596

PATIENT
  Age: 57 Year
  Sex: Male
  Weight: 75.7 kg

DRUGS (8)
  1. ZOMETA [Suspect]
     Indication: MULTIPLE MYELOMA
     Dosage: 4 MG, QMO, INFUSION
     Dates: start: 20021007, end: 20041203
  2. VERAPAMIL [Concomitant]
  3. ARTIFICIAL TEARS (NO INGREDIENTS/SUBSTANCES) [Concomitant]
  4. SENOKOT/USA/SENNA, SENNA ALEXANDRINA) [Concomitant]
  5. COLACE (DOCUSATE SODIUM) [Concomitant]
  6. CALCIUM WITH VITAMIN D (CALCIUM PHOSPHATE, CALCIUM SODIUM LACTATE, ERG [Concomitant]
  7. AMITRIPTYLINE HCL [Concomitant]
  8. OXYCODONE HCL [Concomitant]

REACTIONS (5)
  - BONE EROSION [None]
  - DENTAL TREATMENT [None]
  - IMPAIRED HEALING [None]
  - OSTEONECROSIS [None]
  - TOOTH ABSCESS [None]
